FAERS Safety Report 16663990 (Version 1)
Quarter: 2019Q3

REPORT INFORMATION
  Report Type: Spontaneous
  Country: US (occurrence: US)
  Receive Date: 20190802
  Receipt Date: 20190802
  Transmission Date: 20191004
  Serious: Yes (Other)
  Sender: FDA-Public Use
  Company Number: US-TEVA-2019-US-1085329

PATIENT
  Age: 74 Year
  Sex: Male
  Weight: 90 kg

DRUGS (10)
  1. ENZALUTAMIDE [Concomitant]
     Active Substance: ENZALUTAMIDE
     Indication: HORMONE-REFRACTORY PROSTATE CANCER
  2. PREDNISONE. [Concomitant]
     Active Substance: PREDNISONE
     Dates: start: 20190315
  3. ACETAZOLAMIDE. [Concomitant]
     Active Substance: ACETAZOLAMIDE
     Dates: start: 20190109
  4. BRIMONIDINE TARTRATE. [Concomitant]
     Active Substance: BRIMONIDINE TARTRATE
  5. DROZOLAMIDE/TIMOLOL [Concomitant]
     Active Substance: DORZOLAMIDE HYDROCHLORIDE\TIMOLOL MALEATE
     Dates: start: 20190412
  6. CABAZITAXEL [Concomitant]
     Active Substance: CABAZITAXEL
     Dates: start: 20190315
  7. LEUPROLIDE [Concomitant]
     Active Substance: LEUPROLIDE
     Dates: start: 20180404
  8. BIMATOPROST. [Concomitant]
     Active Substance: BIMATOPROST
     Dates: start: 20190307
  9. KETOROLAC TROMETHAMINE. [Concomitant]
     Active Substance: KETOROLAC TROMETHAMINE
     Dates: start: 20180505
  10. ZOLEDRONATE [Suspect]
     Active Substance: ZOLEDRONIC ACID
     Indication: METASTASES TO BONE
     Dosage: ALSO REPORTED AS 05-JUN-2019
     Route: 042
     Dates: start: 20171129, end: 20190508

REACTIONS (1)
  - Osteonecrosis of jaw [Not Recovered/Not Resolved]

NARRATIVE: CASE EVENT DATE: 20190508
